FAERS Safety Report 12430671 (Version 1)
Quarter: 2016Q2

REPORT INFORMATION
  Report Type: Spontaneous
  Country: US (occurrence: US)
  Receive Date: 20160602
  Receipt Date: 20160602
  Transmission Date: 20160815
  Serious: No
  Sender: FDA-Public Use
  Company Number: US-PURDUE-USA-2015-0125370

PATIENT
  Sex: Male

DRUGS (3)
  1. OXYCODONE HCL IR CAPSULES [Suspect]
     Active Substance: OXYCODONE HYDROCHLORIDE
     Indication: BACK INJURY
     Dosage: UNK MG, UNK
     Route: 048
     Dates: start: 1990
  2. HYDROCODONE [Concomitant]
     Active Substance: HYDROCODONE
     Indication: BACK INJURY
     Dosage: UNK MG, UNK
     Route: 048
  3. MORPHINE SULFATE (SIMILAR TO NDA 19-516) [Suspect]
     Active Substance: MORPHINE SULFATE
     Indication: BACK INJURY
     Dosage: UNK MG, UNK
     Route: 065
     Dates: start: 1990

REACTIONS (1)
  - Drug ineffective [Unknown]
